FAERS Safety Report 8551274-7 (Version None)
Quarter: 2012Q3

REPORT INFORMATION
  Report Type: 
  Country: None (occurrence: None)
  Receive Date: 20120730
  Receipt Date: 20111229
  Transmission Date: 20120928
  Serious: No
  Sender: FDA-Public Use
  Company Number: US-ALLERGAN-1116976US

PATIENT
  Age: 73 Year
  Sex: Female

DRUGS (3)
  1. LATISSE [Suspect]
     Indication: HYPOTRICHOSIS
     Dosage: 2 GTT, QHS
     Route: 061
     Dates: start: 20111226
  2. OTC EYE DROPS [Concomitant]
     Indication: PRODUCT USED FOR UNKNOWN INDICATION
  3. LATISSE [Suspect]
     Indication: MADAROSIS

REACTIONS (4)
  - EYE DISORDER [None]
  - SINUS DISORDER [None]
  - EYELIDS PRURITUS [None]
  - LACRIMATION INCREASED [None]
